FAERS Safety Report 8261557-6 (Version None)
Quarter: 2012Q2

REPORT INFORMATION
  Report Type: 
  Country: None (occurrence: None)
  Receive Date: 20120405
  Receipt Date: 20120328
  Transmission Date: 20120825
  Serious: Yes (Hospitalization)
  Sender: FDA-Public Use
  Company Number: US-BAYER-2012-031591

PATIENT
  Age: 36 Year
  Sex: Female
  Weight: 68 kg

DRUGS (10)
  1. SODIUM SULFACETAMIDE [Concomitant]
     Dosage: UNK
     Dates: start: 20061223
  2. ACETAMINOPHEN [Concomitant]
  3. RETIN-A MICRO [Concomitant]
     Dosage: UNK
     Route: 061
     Dates: start: 20070108
  4. FLUTICASONE FUROATE [Concomitant]
     Dosage: UNK
     Dates: start: 20070214
  5. ASPIRIN [Concomitant]
     Dosage: UNK UNK, PRN
     Route: 048
     Dates: start: 20070201, end: 20070301
  6. IBUPROFEN [Concomitant]
     Dosage: UNK UNK, PRN
     Route: 048
     Dates: start: 20070201, end: 20070301
  7. TYLENOL MIGRAINE [Concomitant]
     Dosage: UNK UNK, PRN
     Route: 048
     Dates: start: 20070201, end: 20070301
  8. YAZ [Suspect]
     Indication: CONTRACEPTION
     Dosage: UNK
     Dates: start: 20061201, end: 20070317
  9. TYLENOL [Concomitant]
     Indication: MIGRAINE
     Dosage: UNK UNK, PRN
     Route: 048
     Dates: start: 20070201, end: 20070301
  10. YAZ [Suspect]
     Indication: ACNE

REACTIONS (7)
  - PAIN [None]
  - HEADACHE [None]
  - FATIGUE [None]
  - NAUSEA [None]
  - ANHEDONIA [None]
  - ASTHENIA [None]
  - CEREBROVASCULAR ACCIDENT [None]
